FAERS Safety Report 8600875-6 (Version None)
Quarter: 2012Q3

REPORT INFORMATION
  Report Type: 
  Country: None (occurrence: None)
  Receive Date: 20120817
  Receipt Date: 20120810
  Transmission Date: 20120928
  Serious: Yes (Hospitalization)
  Sender: FDA-Public Use
  Company Number: FR-SANOFI-AVENTIS-2012SA057418

PATIENT
  Age: 74 Year
  Sex: Female

DRUGS (17)
  1. AMLODIPINE [Suspect]
     Route: 048
     Dates: start: 20120602
  2. DIGOXIN [Suspect]
     Route: 048
     Dates: start: 20120601
  3. POLYETHYLENE GLYCOL [Concomitant]
     Route: 048
  4. CRESTOR [Suspect]
     Route: 048
     Dates: start: 20120101, end: 20120608
  5. VENLAFAXINE [Suspect]
     Route: 048
     Dates: end: 20120604
  6. CEFTRIAXONE [Suspect]
     Route: 042
     Dates: start: 20120605, end: 20120609
  7. METRONIDAZOLE [Suspect]
     Route: 042
     Dates: start: 20120608, end: 20120609
  8. ARIXTRA [Suspect]
     Route: 058
     Dates: start: 20120501
  9. RISPERDAL [Suspect]
     Route: 048
     Dates: start: 20120501, end: 20120613
  10. COLECALCIFEROL [Suspect]
     Indication: VITAMIN D DEFICIENCY
     Route: 048
     Dates: start: 20120606, end: 20120607
  11. ACETAMINOPHEN [Suspect]
     Indication: PAIN
     Route: 042
     Dates: start: 20120605, end: 20120608
  12. POTASSIUM CHLORIDE [Suspect]
     Route: 048
     Dates: start: 20120530
  13. VENLAFAXINE [Suspect]
     Route: 048
     Dates: start: 20120605, end: 20120612
  14. ASPIRIN [Concomitant]
  15. FERROUS SULFATE TAB [Concomitant]
     Route: 048
  16. LASIX [Suspect]
     Route: 048
     Dates: start: 20120530, end: 20120605
  17. BISOPROLOL FUMARATE [Suspect]
     Route: 048
     Dates: start: 20120607, end: 20120608

REACTIONS (1)
  - CYTOLYTIC HEPATITIS [None]
